FAERS Safety Report 7608448 (Version 2)
Quarter: 2014Q1

REPORT INFORMATION
  Report Type: Spontaneous
  Country: CN (occurrence: CN)
  Receive Date: 20100927
  Receipt Date: 20140226
  Transmission Date: 20141002
  Serious: Yes (Hospitalization, Other)
  Sender: FDA-Public Use
  Company Number: PHHY2010CN54817

PATIENT
  Age: 26 Year
  Sex: Male

DRUGS (1)
  1. TELBIVUDINE [Suspect]
     Indication: HEPATITIS B
     Dosage: 0.65 MG, DAILY
     Dates: start: 200711

REACTIONS (37)
  - Myopathy [Recovering/Resolving]
  - Myalgia [Recovering/Resolving]
  - Muscle atrophy [Recovering/Resolving]
  - Metabolic acidosis [Recovering/Resolving]
  - Muscular weakness [Unknown]
  - Hypotonia [Unknown]
  - Oedema peripheral [Recovering/Resolving]
  - Fatigue [Unknown]
  - Gait disturbance [Unknown]
  - Myoglobin blood increased [Unknown]
  - Blood lactate dehydrogenase increased [Unknown]
  - Blood creatine phosphokinase increased [Unknown]
  - Blood creatine phosphokinase MB increased [Unknown]
  - Blood pH decreased [Unknown]
  - Lactic acidosis [Recovering/Resolving]
  - Somnolence [Recovering/Resolving]
  - Blood bicarbonate decreased [Unknown]
  - Base excess increased [Unknown]
  - PCO2 decreased [Unknown]
  - Asthenia [Unknown]
  - Lung infection [Unknown]
  - Sinus tachycardia [Recovering/Resolving]
  - Tachypnoea [Recovering/Resolving]
  - Chest discomfort [Recovering/Resolving]
  - Respiratory rate increased [Unknown]
  - Blood pressure decreased [Unknown]
  - Breath sounds abnormal [Unknown]
  - Chest X-ray abnormal [Unknown]
  - Heart rate increased [Unknown]
  - Palpitations [Recovering/Resolving]
  - Rales [Recovering/Resolving]
  - Dyspnoea [Recovering/Resolving]
  - Oliguria [Unknown]
  - Dysphonia [Recovering/Resolving]
  - Blood triglycerides increased [Unknown]
  - Blood urea abnormal [Unknown]
  - Blood creatinine abnormal [Unknown]
